FAERS Safety Report 7422995-4 (Version None)
Quarter: 2011Q2

REPORT INFORMATION
  Report Type: 
  Country: None (occurrence: None)
  Receive Date: 20110411
  Receipt Date: 20110324
  Transmission Date: 20111010
  Serious: Yes (Hospitalization, Other)
  Sender: FDA-Public Use
  Company Number: 2009SP017750

PATIENT
  Age: 68 Year
  Sex: Male

DRUGS (2)
  1. TEMODAL [Suspect]
     Indication: GLIOBLASTOMA
     Dates: start: 20050901, end: 20051201
  2. CORTISONE [Concomitant]

REACTIONS (1)
  - DEEP VEIN THROMBOSIS [None]
